FAERS Safety Report 19672415 (Version 1)
Quarter: 2021Q3

REPORT INFORMATION
  Report Type: Spontaneous
  Country: CA (occurrence: CA)
  Receive Date: 20210808
  Receipt Date: 20210808
  Transmission Date: 20211014
  Serious: Yes (Other)
  Sender: FDA-Public Use
  Company Number: CA-BEH-2021134379

PATIENT
  Age: 22 Year
  Sex: Male

DRUGS (7)
  1. C1?ESTERASE INHIBITOR (INN) [Suspect]
     Active Substance: HUMAN C1-ESTERASE INHIBITOR
     Indication: HEREDITARY ANGIOEDEMA
  2. C1?ESTERASE INHIBITOR (INN) [Suspect]
     Active Substance: HUMAN C1-ESTERASE INHIBITOR
     Indication: PROPHYLAXIS
     Dosage: UNK
     Route: 065
  3. C1?ESTERASE INHIBITOR (INN) [Suspect]
     Active Substance: HUMAN C1-ESTERASE INHIBITOR
     Indication: DENTAL OPERATION
  4. ICATIBANT [Suspect]
     Active Substance: ICATIBANT ACETATE
     Indication: HEREDITARY ANGIOEDEMA
  5. ICATIBANT [Suspect]
     Active Substance: ICATIBANT ACETATE
     Indication: HEREDITARY ANGIOEDEMA
  6. DANAZOL. [Concomitant]
     Active Substance: DANAZOL
     Dosage: 100?200 MG, BID
     Route: 048
  7. HAEGARDA [Suspect]
     Active Substance: HUMAN C1-ESTERASE INHIBITOR
     Indication: PROPHYLAXIS
     Dosage: 5000 INTERNATIONAL UNIT, BIW
     Route: 058

REACTIONS (1)
  - Hereditary angioedema [Unknown]
